FAERS Safety Report 6940301-6 (Version None)
Quarter: 2010Q3

REPORT INFORMATION
  Report Type: 
  Country: None (occurrence: None)
  Receive Date: 20100825
  Receipt Date: 20100816
  Transmission Date: 20110219
  Serious: Yes (Other)
  Sender: FDA-Public Use
  Company Number: CA-JNJFOC-20100210286

PATIENT
  Sex: Female

DRUGS (2)
  1. ORTHO TRI-CYCLEN LO [Suspect]
     Indication: PRODUCT USED FOR UNKNOWN INDICATION
     Route: 048
  2. APO-SULFATRIM [Interacting]
     Indication: CYSTITIS
     Route: 065

REACTIONS (3)
  - CYSTITIS [None]
  - DRUG INTERACTION [None]
  - METRORRHAGIA [None]
